FAERS Safety Report 4660065-9 (Version None)
Quarter: 2005Q2

REPORT INFORMATION
  Report Type: 
  Country: None (occurrence: None)
  Receive Date: 20050512
  Receipt Date: 20041215
  Transmission Date: 20051028
  Serious: No
  Sender: FDA-Public Use
  Company Number: US-GLAXOSMITHKLINE-A0537429A

PATIENT
  Age: 73 Year

DRUGS (7)
  1. RELAFEN [Suspect]
     Indication: OSTEOARTHRITIS
     Dosage: 750MG TWICE PER DAY
     Route: 048
     Dates: start: 20041201
  2. METOPROLOL TARTRATE [Concomitant]
  3. HYZAAR [Concomitant]
  4. WATER PILL [Concomitant]
  5. NORVASC [Concomitant]
  6. VITAMINS [Concomitant]
  7. B-12 [Concomitant]

REACTIONS (4)
  - DIARRHOEA [None]
  - DIZZINESS [None]
  - NAUSEA [None]
  - VISION BLURRED [None]
